FAERS Safety Report 10208173 (Version 1)
Quarter: 2014Q2

REPORT INFORMATION
  Report Type: Spontaneous
  Country: US (occurrence: US)
  Receive Date: 20140530
  Receipt Date: 20140530
  Transmission Date: 20141212
  Serious: Yes (Other)
  Sender: FDA-Public Use
  Company Number: US-NAPPMUNDI-USA-2013-0106840

PATIENT
  Sex: Male

DRUGS (5)
  1. MORPHINE SULFATE (SIMILAR TO NDA 19-516) [Suspect]
     Indication: PRODUCT USED FOR UNKNOWN INDICATION
  2. OXYCONTIN (NDA 22-272) [Suspect]
     Indication: PRODUCT USED FOR UNKNOWN INDICATION
  3. ULTRAM [Suspect]
     Indication: PRODUCT USED FOR UNKNOWN INDICATION
  4. XANAX [Suspect]
     Indication: PRODUCT USED FOR UNKNOWN INDICATION
  5. HYDROCODONE [Suspect]
     Indication: PRODUCT USED FOR UNKNOWN INDICATION

REACTIONS (3)
  - Drug abuse [Unknown]
  - Gait disturbance [Unknown]
  - Dysarthria [Unknown]
